FAERS Safety Report 5415156-1 (Version None)
Quarter: 2007Q3

REPORT INFORMATION
  Report Type: 
  Country: None (occurrence: None)
  Receive Date: 20070815
  Receipt Date: 20070703
  Transmission Date: 20080115
  Serious: No
  Sender: FDA-Public Use
  Company Number: A0661952A

PATIENT
  Sex: Female

DRUGS (2)
  1. COREG CR [Suspect]
     Dosage: 10MG PER DAY
     Route: 048
  2. ARIMIDEX [Concomitant]

REACTIONS (1)
  - DIZZINESS [None]
